FAERS Safety Report 7362082-7 (Version None)
Quarter: 2011Q1

REPORT INFORMATION
  Report Type: 
  Country: None (occurrence: None)
  Receive Date: 20110318
  Receipt Date: 20110308
  Transmission Date: 20110831
  Serious: Yes (Hospitalization)
  Sender: FDA-Public Use
  Company Number: US-JNJFOC-20100206563

PATIENT
  Sex: Female
  Weight: 75.4 kg

DRUGS (5)
  1. REMICADE [Suspect]
     Dosage: TOTAL 19 DOSES
     Route: 042
  2. MESALAMINE [Concomitant]
  3. REMICADE [Suspect]
     Indication: CROHN'S DISEASE
     Route: 042
  4. PROTONIX [Concomitant]
  5. MERCAPTOPURINE [Concomitant]

REACTIONS (1)
  - CROHN'S DISEASE [None]
